FAERS Safety Report 24632321 (Version 1)
Quarter: 2024Q4

REPORT INFORMATION
  Report Type: Spontaneous
  Country: US (occurrence: None)
  Receive Date: 20241118
  Receipt Date: 20241118
  Transmission Date: 20250115
  Serious: No
  Sender: Public
  Company Number: None

PATIENT
  Age: 82 Year
  Sex: Female
  Weight: 75.15 kg

DRUGS (15)
  1. LEVOCETIRIZINE DIHYDROCHLORIDE [Suspect]
     Active Substance: LEVOCETIRIZINE DIHYDROCHLORIDE
     Indication: Seasonal allergy
     Dosage: OTHER QUANTITY : 1 TABLET(S);?FREQUENCY : DAILY;?
     Route: 048
  2. LEVOTHYROXINE [Concomitant]
     Active Substance: LEVOTHYROXINE
  3. ANASTROZOLE [Concomitant]
     Active Substance: ANASTROZOLE
  4. ZYRTEC [Concomitant]
     Active Substance: CETIRIZINE HYDROCHLORIDE
  5. LEXAPRO [Concomitant]
     Active Substance: ESCITALOPRAM OXALATE
  6. SIMVASTATIN [Concomitant]
     Active Substance: SIMVASTATIN
  7. MONTELUKAST [Concomitant]
     Active Substance: MONTELUKAST
  8. MINERALS\VITAMINS [Concomitant]
     Active Substance: MINERALS\VITAMINS
  9. calcium citrate plus D3 [Concomitant]
  10. VITAMINS [Concomitant]
     Active Substance: VITAMINS
  11. B12 [Concomitant]
  12. VITAMIN D3 [Concomitant]
     Active Substance: CHOLECALCIFEROL
  13. magnesium glyconate [Concomitant]
  14. HERBALS\TURMERIC [Concomitant]
     Active Substance: HERBALS\TURMERIC
  15. COENZYME Q10 [Concomitant]
     Active Substance: DIETARY SUPPLEMENT\UBIDECARENONE

REACTIONS (1)
  - Incontinence [None]

NARRATIVE: CASE EVENT DATE: 20241115
